FAERS Safety Report 7789420-5 (Version None)
Quarter: 2011Q3

REPORT INFORMATION
  Report Type: 
  Country: None (occurrence: None)
  Receive Date: 20110930
  Receipt Date: 20110923
  Transmission Date: 20111222
  Serious: Yes (Hospitalization, Disabling)
  Sender: FDA-Public Use
  Company Number: AU-B.I. PHARMACEUTICALS,INC./RIDGEFIELD-2011-AU-01233AU

PATIENT
  Sex: Male
  Weight: 81 kg

DRUGS (6)
  1. MICARDIS [Concomitant]
     Dosage: 80 MG
  2. PRADAXA [Suspect]
     Indication: ATRIAL FIBRILLATION
     Dosage: 220 MG
     Dates: start: 20110727, end: 20110814
  3. SPIRIVA [Concomitant]
     Dosage: 1 MANE
  4. MINIPRESS [Concomitant]
     Dosage: 2 MG
  5. SYMBICORT [Concomitant]
     Dosage: 1 TWICE DAILY
  6. LIPITOR [Concomitant]
     Dosage: 20 MG

REACTIONS (2)
  - CEREBRAL HAEMORRHAGE [None]
  - CONVULSION [None]
